FAERS Safety Report 9827806 (Version 1)
Quarter: 2013Q4

REPORT INFORMATION
  Report Type: Spontaneous
  Country: US (occurrence: None)
  Receive Date: 20131120
  Receipt Date: 20131120
  Transmission Date: 20140711
  Serious: No
  Sender: FDA-Public Use
  Company Number: 1000048078

PATIENT
  Sex: Female

DRUGS (4)
  1. VIIBRYD [Suspect]
     Indication: DEPRESSION
     Dosage: 10 MG (10 MG, 1 IN 1 D), ORAL
     Route: 048
     Dates: start: 201306, end: 2013
  2. METFORMIN (METFORMIN) (METFORMIN) [Concomitant]
  3. LISINOPRIL (LISINOPRIL) (LISINOPRIL) [Concomitant]
  4. MELOXICAM (MELOXICAM) (MELOXICAM) [Concomitant]

REACTIONS (1)
  - Blood glucose increased [None]
